FAERS Safety Report 4683197-8 (Version None)
Quarter: 2005Q2

REPORT INFORMATION
  Report Type: 
  Country: None (occurrence: None)
  Receive Date: 20050602
  Receipt Date: 20050126
  Transmission Date: 20051028
  Serious: No
  Sender: FDA-Public Use
  Company Number: USA050289627

PATIENT
  Age: 65 Year
  Sex: Female

DRUGS (1)
  1. CYMBALTA [Suspect]
     Dosage: 60 MG/ 1 DAY
     Dates: start: 20041125, end: 20050124

REACTIONS (2)
  - DEPRESSION [None]
  - ESSENTIAL TREMOR [None]
